FAERS Safety Report 8159166-2 (Version None)
Quarter: 2012Q1

REPORT INFORMATION
  Report Type: 
  Country: None (occurrence: None)
  Receive Date: 20120223
  Receipt Date: 20120213
  Transmission Date: 20120608
  Serious: Yes (Hospitalization)
  Sender: FDA-Public Use
  Company Number: US-JNJFOC-20120206737

PATIENT
  Sex: Female
  Weight: 52.16 kg

DRUGS (2)
  1. SIMPONI [Suspect]
     Indication: RHEUMATOID ARTHRITIS
     Route: 058
     Dates: start: 20110607, end: 20110705
  2. METHOTREXATE [Concomitant]
     Indication: ARTHRITIS
     Dates: start: 20110607

REACTIONS (2)
  - ARTHRITIS BACTERIAL [None]
  - SYNOVIAL CYST [None]
